FAERS Safety Report 10180564 (Version 1)
Quarter: 2014Q2

REPORT INFORMATION
  Report Type: Spontaneous
  Country: US (occurrence: US)
  Receive Date: 20140519
  Receipt Date: 20140519
  Transmission Date: 20141212
  Serious: No
  Sender: FDA-Public Use
  Company Number: US-AMGEN INC.-USASP2014003814

PATIENT
  Age: 69 Year
  Sex: Female

DRUGS (4)
  1. PROLIA [Suspect]
     Indication: PRODUCT USED FOR UNKNOWN INDICATION
     Dosage: UNK
     Route: 065
     Dates: start: 2011
  2. CELEXA                             /00582602/ [Concomitant]
     Route: 065
  3. NEURONTIN [Concomitant]
     Route: 065
  4. ZYPREXA [Concomitant]
     Route: 065

REACTIONS (1)
  - Alopecia [Unknown]
